FAERS Safety Report 6306636-5 (Version None)
Quarter: 2009Q3

REPORT INFORMATION
  Report Type: 
  Country: None (occurrence: None)
  Receive Date: 20090812
  Receipt Date: 20090803
  Transmission Date: 20100115
  Serious: Yes (Death, Life-Threatening, Hospitalization, Disabling)
  Sender: FDA-Public Use
  Company Number: B0585290A

PATIENT
  Sex: Female
  Weight: 39 kg

DRUGS (6)
  1. VALTREX [Suspect]
     Indication: GENITAL HERPES
     Dosage: 1000MG TWICE PER DAY
     Route: 048
     Dates: start: 20090715, end: 20090720
  2. OMEPRAL [Concomitant]
     Dosage: 20MG PER DAY
     Dates: end: 20090719
  3. RISUMIC [Concomitant]
     Indication: BLOOD PRESSURE DECREASED
     Dosage: 10MG PER DAY
     Route: 048
     Dates: end: 20090719
  4. HOKUNALIN [Concomitant]
     Indication: BRONCHIECTASIS
     Dosage: 2MG PER DAY
     Route: 062
     Dates: end: 20090719
  5. BERAPROST SODIUM [Concomitant]
     Indication: HYPERTENSION
     Dosage: 180MCG PER DAY
     Route: 048
     Dates: end: 20090719
  6. TRACLEER [Concomitant]
     Indication: PULMONARY HYPERTENSION
     Dosage: 500MG PER DAY
     Route: 048
     Dates: end: 20090719

REACTIONS (5)
  - ALTERED STATE OF CONSCIOUSNESS [None]
  - BLOOD PRESSURE DECREASED [None]
  - POISONING [None]
  - RESPIRATORY FAILURE [None]
  - TACHYPNOEA [None]
